FAERS Safety Report 26034376 (Version 1)
Quarter: 2025Q4

REPORT INFORMATION
  Report Type: Spontaneous
  Country: CN (occurrence: CN)
  Receive Date: 20251112
  Receipt Date: 20251112
  Transmission Date: 20260117
  Serious: Yes (Life-Threatening)
  Sender: GE HEALTHCARE
  Company Number: None

PATIENT
  Age: 12 Year
  Sex: Male
  Weight: 82 kg

DRUGS (6)
  1. OMNISCAN [Suspect]
     Active Substance: GADODIAMIDE
     Indication: Magnetic resonance imaging
     Dosage: 16 ML, TOTAL
     Route: 042
     Dates: start: 20251001
  2. MABTHERA [Suspect]
     Active Substance: RITUXIMAB
     Indication: Follicular lymphoma
     Dosage: 597.7 MG, TOTAL
     Route: 041
     Dates: start: 20251001
  3. MABTHERA [Suspect]
     Active Substance: RITUXIMAB
     Dosage: 600 MG, TOTAL
     Route: 042
     Dates: start: 20251024
  4. METHYLPREDNISOLONE [Concomitant]
     Active Substance: METHYLPREDNISOLONE
     Dosage: UNK, QD
     Route: 041
     Dates: start: 20251001
  5. ACETAMINOPHEN [Concomitant]
     Active Substance: ACETAMINOPHEN
     Dosage: UNK, QD
     Route: 048
     Dates: start: 20251001
  6. LORATADINE [Concomitant]
     Active Substance: LORATADINE
     Dosage: UNK, QD
     Route: 048
     Dates: start: 20251001

REACTIONS (3)
  - Electrocardiogram T wave peaked [Recovered/Resolved]
  - Chest pain [Recovered/Resolved]
  - Oxygen saturation decreased [Recovered/Resolved]

NARRATIVE: CASE EVENT DATE: 20251001
